FAERS Safety Report 6158455 (Version 2)
Quarter: 2020Q3

REPORT INFORMATION
  Report Type: Spontaneous
  Country: GB (occurrence: None)
  Receive Date: 20010417
  Receipt Date: 20010418
  Transmission Date: 20201104
  Serious: Yes (Death)
  Sender: FDA-Public Use
  Company Number: 256483

PATIENT
  Age: 50 Year
  Sex: Male

DRUGS (10)
  1. ENFLURANE. [Suspect]
     Active Substance: ENFLURANE
     Indication: ANAESTHESIA
     Dates: start: 20010310
  2. VERSED [Suspect]
     Active Substance: MIDAZOLAM HYDROCHLORIDE
     Indication: ANAESTHESIA
     Dates: start: 20010310
  3. PROPOFOL. [Suspect]
     Active Substance: PROPOFOL
     Indication: ANAESTHESIA
     Dates: start: 20010310
  4. NEOSTIGMINE. [Suspect]
     Active Substance: NEOSTIGMINE METHYLSULFATE
  5. OXYGEN. [Suspect]
     Active Substance: OXYGEN
  6. GLYCOPYRROLATE. [Suspect]
     Active Substance: GLYCOPYRROLATE
  7. VECURONIUM BROMIDE. [Suspect]
     Active Substance: VECURONIUM BROMIDE
     Indication: ANAESTHESIA
     Dates: start: 20010310
  8. NITROUS OXIDE. [Suspect]
     Active Substance: NITROUS OXIDE
  9. EPHEDRINE. [Suspect]
     Active Substance: EPHEDRINE
     Indication: ANAESTHESIA
     Dates: start: 20010310
  10. FENTANYL CITRATE. [Suspect]
     Active Substance: FENTANYL CITRATE

REACTIONS (1)
  - Myocardial infarction [None]

NARRATIVE: CASE EVENT DATE: 20010310
